FAERS Safety Report 6153432-8 (Version None)
Quarter: 2009Q2

REPORT INFORMATION
  Report Type: 
  Country: None (occurrence: None)
  Receive Date: 20090409
  Receipt Date: 20090409
  Transmission Date: 20091009
  Serious: No
  Sender: FDA-Public Use
  Company Number: None

PATIENT
  Age: 69 Year
  Sex: Female
  Weight: 122.4712 kg

DRUGS (15)
  1. ENABLEX [Suspect]
     Indication: URINARY INCONTINENCE
     Dosage: ONE EVERY DAY
     Dates: start: 20081201, end: 20090323
  2. NEXIUM [Concomitant]
  3. NORVASC [Concomitant]
  4. GABAPENTIN [Concomitant]
  5. METOPROLOL TARTRATE [Concomitant]
  6. ZERTEC [Concomitant]
  7. CLONIDINE [Concomitant]
  8. SINEMET [Concomitant]
  9. WARFARIN SODIUM [Concomitant]
  10. DIOVAN [Concomitant]
  11. REQUIP [Concomitant]
  12. MINOXODIL [Concomitant]
  13. LASIX [Concomitant]
  14. TIMOLOL MALEATE [Concomitant]
  15. XALATAN [Concomitant]

REACTIONS (3)
  - DIZZINESS [None]
  - DRY MOUTH [None]
  - VISION BLURRED [None]
